FAERS Safety Report 11756569 (Version 2)
Quarter: 2015Q4

REPORT INFORMATION
  Report Type: Spontaneous
  Country: TR (occurrence: TR)
  Receive Date: 20151119
  Receipt Date: 20151123
  Transmission Date: 20160304
  Serious: Yes (Hospitalization)
  Sender: FDA-Public Use
  Company Number: TR-JNJFOC-20151118138

PATIENT
  Age: 18 Year
  Sex: Male

DRUGS (3)
  1. MINOXIDIL 5% [Suspect]
     Active Substance: MINOXIDIL
     Indication: ANDROGENETIC ALOPECIA
     Route: 061
  2. MINOXIDIL 5% [Suspect]
     Active Substance: MINOXIDIL
     Route: 061
  3. MINOXIDIL. [Suspect]
     Active Substance: MINOXIDIL
     Indication: ANDROGENETIC ALOPECIA
     Route: 061

REACTIONS (1)
  - Dermatitis contact [Recovering/Resolving]
